FAERS Safety Report 9791589 (Version 2)
Quarter: 2014Q1

REPORT INFORMATION
  Report Type: Spontaneous
  Country: US (occurrence: US)
  Receive Date: 20140101
  Receipt Date: 20140101
  Transmission Date: 20141002
  Serious: No
  Sender: FDA-Public Use
  Company Number: 2012SP003985

PATIENT
  Age: 73 Year
  Sex: Female

DRUGS (5)
  1. VANCOMYCIN [Suspect]
     Indication: CLOSTRIDIAL INFECTION
     Route: 048
     Dates: start: 20121113
  2. VANCOMYCIN [Suspect]
     Indication: CLOSTRIDIAL INFECTION
  3. QUINAPRIL [Concomitant]
     Indication: HYPERTENSION
     Route: 048
  4. VITAMIN C, VITAMIN D [Concomitant]
     Route: 048
  5. COLAZAL [Concomitant]
     Indication: COLITIS ULCERATIVE
     Route: 048

REACTIONS (1)
  - Drug ineffective [Not Recovered/Not Resolved]
